FAERS Safety Report 5385586-5 (Version None)
Quarter: 2007Q3

REPORT INFORMATION
  Report Type: 
  Country: None (occurrence: None)
  Receive Date: 20070712
  Receipt Date: 20070702
  Transmission Date: 20080115
  Serious: Yes (Other)
  Sender: FDA-Public Use
  Company Number: FR-JNJFOC-20070700636

PATIENT
  Age: 68 Year
  Sex: Female

DRUGS (2)
  1. REMICADE [Suspect]
     Indication: AUTOIMMUNE DISORDER
     Route: 042
  2. AZATHIOPRINE SODIUM [Concomitant]

REACTIONS (1)
  - BREAST CANCER [None]
